FAERS Safety Report 6125236-3 (Version None)
Quarter: 2009Q1

REPORT INFORMATION
  Report Type: 
  Country: None (occurrence: None)
  Receive Date: 20090320
  Receipt Date: 20090309
  Transmission Date: 20090719
  Serious: Yes (Hospitalization)
  Sender: FDA-Public Use
  Company Number: TR-RANBAXY-2009RR-22538

PATIENT
  Sex: Female
  Weight: 2.09 kg

DRUGS (2)
  1. FLUOXETINE [Suspect]
     Dosage: 20 MG, QD
     Route: 015
  2. DIAZEPAM [Suspect]
     Dosage: 10 MG, UNK
     Route: 015

REACTIONS (3)
  - DRUG WITHDRAWAL SYNDROME [None]
  - MENTAL RETARDATION [None]
  - MICROCEPHALY [None]
